FAERS Safety Report 18726769 (Version 2)
Quarter: 2021Q1

REPORT INFORMATION
  Report Type: Spontaneous
  Country: US (occurrence: US)
  Receive Date: 20210112
  Receipt Date: 20210225
  Transmission Date: 20210419
  Serious: Yes (Life-Threatening, Other)
  Sender: FDA-Public Use
  Company Number: US-TEVA-2021-US-1867478

PATIENT
  Age: 65 Year
  Sex: Female

DRUGS (1)
  1. IBUPROFEN. [Suspect]
     Active Substance: IBUPROFEN
     Indication: PAIN
     Dosage: 1600 MILLIGRAM DAILY; START DATE: SHE HAD BEEN RECEIVING IBUPROFEN FOR MORE THAN 6 MONTHS
     Route: 065

REACTIONS (3)
  - Hypokalaemia [Recovering/Resolving]
  - Delirium [Recovering/Resolving]
  - Renal tubular acidosis [Recovering/Resolving]
